FAERS Safety Report 6545084-X (Version None)
Quarter: 2010Q1

REPORT INFORMATION
  Report Type: 
  Country: None (occurrence: None)
  Receive Date: 20100115
  Receipt Date: 20091230
  Transmission Date: 20100710
  Serious: Yes (Other)
  Sender: FDA-Public Use
  Company Number: ALL1-2009-03240

PATIENT
  Age: 13 Year
  Sex: Male
  Weight: 71.2 kg

DRUGS (3)
  1. ADDERALL XR 10 [Suspect]
     Indication: AUTISM
     Dosage: 1X/DAY:QD, ORAL
     Route: 048
  2. LORAZEPAM [Concomitant]
  3. GEODON /01487002/ (ZIPRASIDONE HYDROCHLORIDE) [Concomitant]

REACTIONS (2)
  - DELUSION [None]
  - OFF LABEL USE [None]
